FAERS Safety Report 5827354-3 (Version None)
Quarter: 2008Q3

REPORT INFORMATION
  Report Type: 
  Country: None (occurrence: None)
  Receive Date: 20080724
  Receipt Date: 20080714
  Transmission Date: 20090109
  Serious: Yes (Other)
  Sender: FDA-Public Use
  Company Number: 2008AP000246

PATIENT
  Age: 33 Year
  Sex: Female

DRUGS (16)
  1. PAROXETINE HCL [Suspect]
     Indication: DEPRESSION
     Dosage: SEE IMAGE
     Dates: start: 19960620, end: 20070227
  2. PAROXETINE HCL [Suspect]
     Indication: DEPRESSION
     Dosage: SEE IMAGE
     Dates: start: 19960101
  3. PAROXETINE HCL [Suspect]
     Indication: DEPRESSION
     Dosage: SEE IMAGE
     Dates: start: 19960620
  4. PAROXETINE HCL [Suspect]
     Indication: DEPRESSION
     Dosage: SEE IMAGE
     Dates: start: 19980101
  5. PAROXETINE HCL [Suspect]
     Indication: DEPRESSION
     Dosage: SEE IMAGE
     Dates: start: 20030601
  6. PAROXETINE HCL [Suspect]
     Indication: DEPRESSION
     Dosage: SEE IMAGE
     Dates: start: 20040101
  7. PAROXETINE HCL [Suspect]
     Indication: DEPRESSION
     Dosage: SEE IMAGE
     Dates: start: 20040801
  8. PAROXETINE HCL [Suspect]
     Indication: DEPRESSION
     Dosage: SEE IMAGE
     Dates: start: 20050301
  9. TRAZODONE HCL [Concomitant]
  10. ESCITALOPRAM OXALATE (ESCITALOPRAM OXALATE) [Concomitant]
  11. DIAZEPAM [Concomitant]
  12. MIRTAZAPINE [Concomitant]
  13. OLANZAPINE [Concomitant]
  14. RISPERDAL [Concomitant]
  15. TEMAZEPAM [Concomitant]
  16. VENLAFAXINE HCL [Concomitant]

REACTIONS (49)
  - AFFECTIVE DISORDER [None]
  - ANOREXIA [None]
  - ANXIETY [None]
  - APATHY [None]
  - CONFUSIONAL STATE [None]
  - CRYING [None]
  - DEATH OF RELATIVE [None]
  - DECREASED INTEREST [None]
  - DEPERSONALISATION [None]
  - DEPRESSED MOOD [None]
  - DEPRESSION [None]
  - DEREALISATION [None]
  - DIARRHOEA [None]
  - DISSOCIATION [None]
  - DIZZINESS [None]
  - DRUG DOSE OMISSION [None]
  - DRUG WITHDRAWAL SYNDROME [None]
  - DUODENITIS [None]
  - DYSKINESIA [None]
  - DYSTHYMIC DISORDER [None]
  - EMOTIONAL DISORDER [None]
  - GASTRIC POLYPS [None]
  - GASTRIC ULCER [None]
  - GASTRITIS [None]
  - GENERALISED ANXIETY DISORDER [None]
  - HYPERHIDROSIS [None]
  - HYPERVIGILANCE [None]
  - HYPOAESTHESIA [None]
  - INSOMNIA [None]
  - MALAISE [None]
  - MOOD SWINGS [None]
  - OBSESSIVE THOUGHTS [None]
  - PANIC ATTACK [None]
  - PANIC REACTION [None]
  - PERSONALITY CHANGE [None]
  - POOR QUALITY SLEEP [None]
  - PREMENSTRUAL SYNDROME [None]
  - PSYCHIATRIC SYMPTOM [None]
  - PSYCHOMOTOR HYPERACTIVITY [None]
  - RESTLESSNESS [None]
  - SELF-INJURIOUS IDEATION [None]
  - SOMATISATION DISORDER [None]
  - STOMACH DISCOMFORT [None]
  - SUICIDAL IDEATION [None]
  - SYNCOPE [None]
  - THINKING ABNORMAL [None]
  - TREMOR [None]
  - VOMITING [None]
  - WITHDRAWAL SYNDROME [None]
